FAERS Safety Report 6657853-6 (Version None)
Quarter: 2010Q1

REPORT INFORMATION
  Report Type: 
  Country: None (occurrence: None)
  Receive Date: 20100330
  Receipt Date: 20100327
  Transmission Date: 20100710
  Serious: Yes (Hospitalization)
  Sender: FDA-Public Use
  Company Number: US-ROCHE-688048

PATIENT
  Sex: Female

DRUGS (4)
  1. AVASTIN [Suspect]
     Indication: OVARIAN CANCER
     Route: 042
     Dates: start: 20090910
  2. AVASTIN [Suspect]
     Route: 042
     Dates: start: 20091001, end: 20091210
  3. AVASTIN [Suspect]
     Route: 042
     Dates: end: 20091218
  4. DOXIL [Concomitant]
     Dosage: DOSE 40 MG/M2
     Dates: start: 20091009

REACTIONS (1)
  - PLEURAL EFFUSION [None]
